FAERS Safety Report 18089131 (Version 2)
Quarter: 2020Q3

REPORT INFORMATION
  Report Type: Report from Study
  Country: US (occurrence: US)
  Receive Date: 20200729
  Receipt Date: 20200813
  Transmission Date: 20201103
  Serious: Yes (Death)
  Sender: FDA-Public Use
  Company Number: US-BAUSCH-BL-2019-023607

PATIENT
  Age: 55 Year
  Sex: Male
  Weight: 86.71 kg

DRUGS (2)
  1. XIFAXAN [Suspect]
     Active Substance: RIFAXIMIN
     Route: 048
  2. XIFAXAN [Suspect]
     Active Substance: RIFAXIMIN
     Indication: HEPATIC CIRRHOSIS
     Dosage: STARTED: 3 OR 4 YEARS AGO FROM THE REPORT AND STOPPED: ABOUT 9 DAYS AGO IN AUG/2019
     Route: 048
     Dates: end: 201908

REACTIONS (4)
  - Organ failure [Fatal]
  - Liver disorder [Fatal]
  - Therapy interrupted [Unknown]
  - Asthenia [Not Recovered/Not Resolved]

NARRATIVE: CASE EVENT DATE: 201908
